FAERS Safety Report 10521891 (Version 1)
Quarter: 2014Q4

REPORT INFORMATION
  Report Type: Spontaneous
  Country: US (occurrence: None)
  Receive Date: 20141003
  Receipt Date: 20141003
  Transmission Date: 20150528
  Serious: Yes (Other)
  Sender: FDA-Public Use
  Company Number: 1271014

PATIENT
  Age: 59 Year
  Sex: Female
  Weight: 64.41 kg

DRUGS (3)
  1. PEGASYS [Suspect]
     Active Substance: PEGINTERFERON ALFA-2A
     Indication: CHRONIC HEPATITIS C
     Route: 058
     Dates: start: 20130904
  2. INCIVEK [Suspect]
     Active Substance: TELAPREVIR
     Indication: CHRONIC HEPATITIS C
     Dosage: (750 MG, 3 IN 1 D), ORAL
     Route: 048
     Dates: start: 20130904
  3. RIBASPHERE [Suspect]
     Active Substance: RIBAVIRIN
     Indication: CHRONIC HEPATITIS C
     Dosage: DAILY IN TWO DIVIDED DOSES 200 MG AM AND 400 MG PM (600 MG), ORAL
     Route: 048
     Dates: start: 20130904

REACTIONS (3)
  - Hepatitis C [None]
  - Nausea [None]
  - Vomiting [None]
